FAERS Safety Report 8872321 (Version 2)
Quarter: 2013Q3

REPORT INFORMATION
  Report Type: Spontaneous
  Country: US (occurrence: US)
  Receive Date: 20121026
  Receipt Date: 20130930
  Transmission Date: 20140515
  Serious: No
  Sender: FDA-Public Use
  Company Number: US-AMGEN-USASP2012049233

PATIENT
  Sex: Female

DRUGS (7)
  1. ENBREL [Suspect]
     Indication: PRODUCT USED FOR UNKNOWN INDICATION
     Dosage: 50 MG/ML, QWK
  2. NEXIUM                             /01479302/ [Concomitant]
     Dosage: 20 MG, UNK
  3. XANAX [Concomitant]
     Dosage: 1 MG, UNK
  4. LEVOTHYROXIN [Concomitant]
     Dosage: 175 MUG, UNK
  5. MOBIC [Concomitant]
     Dosage: 15 MG, UNK
  6. TRAZODONE [Concomitant]
     Dosage: 100 MG, UNK
  7. AMLODIPIN                          /00972401/ [Concomitant]
     Dosage: 10 MG, UNK

REACTIONS (1)
  - Migraine [Recovered/Resolved]
